FAERS Safety Report 24658433 (Version 1)
Quarter: 2024Q4

REPORT INFORMATION
  Report Type: Spontaneous
  Country: US (occurrence: US)
  Receive Date: 20241125
  Receipt Date: 20241125
  Transmission Date: 20250114
  Serious: Yes (Hospitalization, Other)
  Sender: ALEMBIC
  Company Number: US-ALEMBIC PHARMACUETICALS LIMITED-2024SCAL001645

PATIENT

DRUGS (3)
  1. BUPROPION HYDROCHLORIDE [Suspect]
     Active Substance: BUPROPION HYDROCHLORIDE
     Indication: Depression
     Dosage: 150 MG
  2. NALOXONE [Concomitant]
     Active Substance: NALOXONE
     Indication: Pneumonia aspiration
     Dosage: UNK
     Route: 065
  3. PIPERACILLIN AND TAZOBACTAM [Concomitant]
     Active Substance: PIPERACILLIN SODIUM\TAZOBACTAM SODIUM
     Indication: Pneumonia aspiration
     Dosage: UNK
     Route: 065

REACTIONS (14)
  - Pulmonary alveolar haemorrhage [Unknown]
  - Hypoxia [Recovered/Resolved]
  - Pulmonary septal thickening [Unknown]
  - Blood pressure increased [Unknown]
  - Tachypnoea [Unknown]
  - Leukocytosis [Unknown]
  - Haemoglobin decreased [Unknown]
  - Haemoptysis [Unknown]
  - Sinus tachycardia [Unknown]
  - Lung opacity [Unknown]
  - Toxicity to various agents [Unknown]
  - Exposure via inhalation [Unknown]
  - Wrong technique in product usage process [Unknown]
  - Intentional product use issue [Unknown]
